FAERS Safety Report 4822853-5 (Version None)
Quarter: 2005Q4

REPORT INFORMATION
  Report Type: 
  Country: None (occurrence: None)
  Receive Date: 20051104
  Receipt Date: 20051024
  Transmission Date: 20060501
  Serious: Yes (Hospitalization, Other)
  Sender: FDA-Public Use
  Company Number: 2005135596

PATIENT
  Age: 29 Year
  Sex: Male

DRUGS (8)
  1. AZITHROMYCIN [Suspect]
     Indication: MYCOBACTERIUM AVIUM COMPLEX INFECTION
     Dosage: 600 MG (600 MG, 1 IN 1 D), ORAL
     Route: 048
     Dates: start: 20030630
  2. EPIVIR [Suspect]
     Indication: HIV INFECTION
     Dosage: 300 MG (150 MG, 1 IN 2 D), ORAL
     Route: 048
     Dates: start: 20030625
  3. ZERIT [Suspect]
     Indication: HIV INFECTION
     Dosage: 60 MG, ORAL
     Route: 048
     Dates: start: 20030701
  4. EFAVIRENZ [Suspect]
     Indication: HIV INFECTION
     Dosage: 600 MG, ORAL
     Route: 048
     Dates: start: 20030625
  5. COTRIM [Suspect]
     Indication: PNEUMOCYSTIS JIROVECI PNEUMONIA
     Dosage: 2 TAB (QD), ORAL
     Route: 048
     Dates: start: 20030620
  6. ESANBUTOL (ETHAMBUTOL) [Suspect]
     Indication: MYCOBACTERIUM AVIUM COMPLEX INFECTION
     Dosage: 750 MG (750 MG, 1 IN 1 D), ORAL
     Route: 048
     Dates: start: 20030630
  7. DENOSINE ^TANABE^ (GANICICLOVIR) [Concomitant]
  8. RIFABUTIN (RIFABUTIN) [Concomitant]

REACTIONS (3)
  - CEREBRAL TOXOPLASMOSIS [None]
  - CONVULSION [None]
  - DEPRESSED LEVEL OF CONSCIOUSNESS [None]
